FAERS Safety Report 8582744-3 (Version None)
Quarter: 2012Q3

REPORT INFORMATION
  Report Type: 
  Country: None (occurrence: None)
  Receive Date: 20120809
  Receipt Date: 20120807
  Transmission Date: 20120928
  Serious: Yes (Other)
  Sender: FDA-Public Use
  Company Number: US-ROCHE-GNE267436

PATIENT
  Sex: Female
  Weight: 147.55 kg

DRUGS (4)
  1. XOLAIR [Suspect]
     Indication: ASTHMA
     Dosage: 300 MG, Q2W
     Route: 058
     Dates: start: 20041201, end: 20051214
  2. XOLAIR [Suspect]
     Indication: RHINITIS ALLERGIC
     Route: 058
     Dates: start: 20051214
  3. XOLAIR [Suspect]
     Dates: start: 20080726
  4. XOLAIR [Suspect]
     Dates: start: 20080823

REACTIONS (4)
  - ANAPHYLACTIC REACTION [None]
  - DIZZINESS [None]
  - HYPERHIDROSIS [None]
  - PALPITATIONS [None]
